FAERS Safety Report 9225097 (Version 2)
Quarter: 2013Q2

REPORT INFORMATION
  Report Type: Report from Study
  Country: US (occurrence: US)
  Receive Date: 20130411
  Receipt Date: 20130419
  Transmission Date: 20140414
  Serious: Yes (Hospitalization)
  Sender: FDA-Public Use
  Company Number: US-ACTELION-A-NJ2013-81646

PATIENT
  Age: 66 Year
  Sex: Female

DRUGS (8)
  1. TRACLEER [Suspect]
     Indication: PULMONARY ARTERIAL HYPERTENSION
     Dosage: 125 MG, BID
     Route: 048
     Dates: start: 2011
  2. TRACLEER [Suspect]
     Dosage: 62.5 MG, BID
     Route: 048
     Dates: start: 2011, end: 2011
  3. SYNTHROID [Concomitant]
     Dosage: 137 MCG, QD
  4. ALDACTONE [Concomitant]
     Dosage: 50 MG, QD
  5. LASIX [Concomitant]
     Dosage: 40 MG, EVERY OTHER DAY
     Dates: end: 201303
  6. LASIX [Concomitant]
     Dosage: 40 MG, QD
     Dates: start: 201303
  7. SILDENAFIL [Concomitant]
  8. TYVASO [Concomitant]

REACTIONS (5)
  - Infection [Unknown]
  - Scleroderma [Recovering/Resolving]
  - Concomitant disease aggravated [Recovering/Resolving]
  - Cellulitis [Recovering/Resolving]
  - Surgery [Recovering/Resolving]
